FAERS Safety Report 10034046 (Version 1)
Quarter: 2014Q1

REPORT INFORMATION
  Report Type: Spontaneous
  Country: US (occurrence: None)
  Receive Date: 20140324
  Receipt Date: 20140324
  Transmission Date: 20141002
  Serious: Yes (Disabling)
  Sender: FDA-Public Use
  Company Number: None

PATIENT
  Age: 31 Year
  Sex: Female
  Weight: 61.24 kg

DRUGS (2)
  1. CIPROFLOXACIN 500MG [Suspect]
     Indication: ACUTE MYELOID LEUKAEMIA
     Dosage: 1
     Route: 048
  2. CIPROFLOXACIN 500MG [Suspect]
     Indication: CHEMOTHERAPY
     Dosage: 1
     Route: 048

REACTIONS (1)
  - Neuropathy peripheral [None]
